FAERS Safety Report 6251983-9 (Version None)
Quarter: 2009Q2

REPORT INFORMATION
  Report Type: 
  Country: None (occurrence: None)
  Receive Date: 20090630
  Receipt Date: 20040127
  Transmission Date: 20091009
  Serious: Yes (Death, Hospitalization)
  Sender: FDA-Public Use
  Company Number: US-ROCHE-638305

PATIENT
  Sex: Male

DRUGS (7)
  1. ENFUVIRTIDE [Suspect]
     Route: 065
     Dates: start: 20030619, end: 20051201
  2. EPIVIR [Concomitant]
     Dates: end: 20040311
  3. VIREAD [Concomitant]
     Dates: end: 20060101
  4. CEFTIN [Concomitant]
     Dates: start: 20040119, end: 20040302
  5. ACYCLOVIR [Concomitant]
     Dates: end: 20070101
  6. SPORANOX [Concomitant]
     Dates: end: 20060101
  7. KALETRA [Concomitant]
     Dates: start: 20030915, end: 20040311

REACTIONS (2)
  - DEATH [None]
  - PAROTID GLAND ENLARGEMENT [None]
